FAERS Safety Report 6286922-8 (Version None)
Quarter: 2009Q3

REPORT INFORMATION
  Report Type: 
  Country: None (occurrence: None)
  Receive Date: 20090724
  Receipt Date: 20090714
  Transmission Date: 20100115
  Serious: Yes (Hospitalization)
  Sender: FDA-Public Use
  Company Number: 230428K09BRA

PATIENT
  Age: 45 Year
  Sex: Female

DRUGS (5)
  1. REBIF [Suspect]
     Indication: RELAPSING-REMITTING MULTIPLE SCLEROSIS
     Dosage: 44 MCG, 3 IN 1 WEEKS
     Dates: start: 20040903
  2. CIPRO [Concomitant]
  3. ENALAPRIL (ENALAPRIL/00574901/) [Concomitant]
  4. PROPRANOLOL (PROPRANOLOL/00030001/) [Concomitant]
  5. SOLUMEDRON [SOLU-MEDROL] (METHYLPREDNISOLONE SODIUM SUCCINATE) [Concomitant]

REACTIONS (4)
  - ABASIA [None]
  - ASTHENIA [None]
  - MALAISE [None]
  - URINARY TRACT INFECTION [None]
